FAERS Safety Report 14746927 (Version 1)
Quarter: 2018Q2

REPORT INFORMATION
  Report Type: Spontaneous
  Country: US (occurrence: US)
  Receive Date: 20180405
  Receipt Date: 20180405
  Transmission Date: 20180711
  Serious: Yes (Other)
  Sender: FDA-Public Use
  Company Number: None

PATIENT
  Age: 60 Year
  Sex: Female

DRUGS (13)
  1. OCALIVA [Suspect]
     Active Substance: OBETICHOLIC ACID
     Indication: PRIMARY BILIARY CHOLANGITIS
     Route: 048
  2. FISH OIL [Concomitant]
     Active Substance: FISH OIL
  3. URSODIOL. [Concomitant]
     Active Substance: URSODIOL
  4. COLCHICINE. [Concomitant]
     Active Substance: COLCHICINE
  5. CENTRUM [Concomitant]
     Active Substance: VITAMINS
  6. CRANBERRY. [Concomitant]
     Active Substance: CRANBERRY
  7. BALSALAZIDE [Concomitant]
     Active Substance: BALSALAZIDE
  8. CLARITIN [Concomitant]
     Active Substance: LORATADINE
  9. DOXYCYCL HYC [Concomitant]
  10. MULTI VITAMN [Concomitant]
  11. PREMARIN [Concomitant]
     Active Substance: ESTROGENS, CONJUGATED
  12. VITAMIN D3 [Concomitant]
     Active Substance: CHOLECALCIFEROL
  13. VITAMIN K2 [Concomitant]
     Active Substance: MENAQUINONE 6

REACTIONS (2)
  - Pruritus [None]
  - Dry skin [None]
